FAERS Safety Report 4582240-4 (Version None)
Quarter: 2005Q1

REPORT INFORMATION
  Report Type: 
  Country: None (occurrence: None)
  Receive Date: 20050211
  Receipt Date: 20050211
  Transmission Date: 20050727
  Serious: No
  Sender: FDA-Public Use
  Company Number: None

PATIENT
  Sex: Male

DRUGS (1)
  1. AMPICILLIN 500 MG VIAL [Suspect]
     Dosage: 325 MG IV Q 12 H
     Route: 042

REACTIONS (2)
  - CARDIAC ARREST [None]
  - INFUSION RELATED REACTION [None]
